FAERS Safety Report 17962066 (Version 2)
Quarter: 2021Q1

REPORT INFORMATION
  Report Type: Spontaneous
  Country: US (occurrence: US)
  Receive Date: 20200630
  Receipt Date: 20210104
  Transmission Date: 20210419
  Serious: No
  Sender: FDA-Public Use
  Company Number: US-PFIZER INC-2018052254

PATIENT
  Age: 86 Year
  Sex: Female
  Weight: 79.83 kg

DRUGS (10)
  1. PANTOPRAZOLE SODIUM. [Concomitant]
     Active Substance: PANTOPRAZOLE SODIUM
     Dosage: 40 MG, DAILY (TABLET DELAYED RELEASE; TAKE ONE TABLET BY MOUTH EVERY MORNING/90 TABLET)
     Route: 048
     Dates: start: 20141028
  2. ASPIRINE [Concomitant]
     Active Substance: ASPIRIN
     Dosage: 81 MG, DAILY (SUFFICIENT TABLET)
     Dates: start: 20150313
  3. GABAPENTIN. [Concomitant]
     Active Substance: GABAPENTIN
     Dosage: 100 MG, 3X/DAY (90 CAPSULE)
     Route: 048
     Dates: start: 20170803
  4. ALPRAZOLAM. [Concomitant]
     Active Substance: ALPRAZOLAM
     Dosage: 0.5 MG, AS NEEDED (1 TABLET 3 TIMES DAILY/90 TABLET)
     Route: 048
     Dates: start: 20140424
  5. HYDROCODONE/ACETAMINOPHEN [Concomitant]
     Active Substance: ACETAMINOPHEN\HYDROCODONE
     Dosage: 1 DF, AS NEEDED (1 TABLET EVERY 6 HOURS AS NEEDED/60 TABLET)
     Route: 048
     Dates: start: 20151029
  6. MONTELUKAST SODIUM. [Concomitant]
     Active Substance: MONTELUKAST SODIUM
     Dosage: 10 MG, 1X/DAY (30 TABLET)
     Route: 048
     Dates: start: 20150709
  7. CARVEDILOL. [Concomitant]
     Active Substance: CARVEDILOL
     Dosage: UNK, 2X/DAY (TAKE ONE?HALF TABLET/90 TABLET)
     Route: 048
     Dates: start: 20141028
  8. GLIMEPIRIDE. [Concomitant]
     Active Substance: GLIMEPIRIDE
     Dosage: 2 MG, DAILY (EVERY NIGHT AT BEDTIME/90 TABLET)
     Route: 048
     Dates: start: 20151106
  9. LIDOCAINE 5% EXTRA [Concomitant]
     Dosage: UNK (30 PATCH)
     Dates: start: 20171103
  10. LYRICA [Suspect]
     Active Substance: PREGABALIN
     Indication: PAIN IN EXTREMITY
     Dosage: 75 MG, 3X/DAY
     Route: 048

REACTIONS (2)
  - Extra dose administered [Unknown]
  - Drug withdrawal syndrome [Unknown]
